FAERS Safety Report 9844748 (Version 1)
Quarter: 2014Q1

REPORT INFORMATION
  Report Type: Spontaneous
  Country: GB (occurrence: None)
  Receive Date: 20140122
  Receipt Date: 20140122
  Transmission Date: 20141002
  Serious: Yes (Other)
  Sender: FDA-Public Use
  Company Number: 2014AP000234

PATIENT
  Sex: 0

DRUGS (1)
  1. ALENDRONIC ACID (ALENDRONIC ACID) [Suspect]
     Indication: SPINAL COMPRESSION FRACTURE
     Route: 048
     Dates: start: 20121009, end: 20130827

REACTIONS (1)
  - Tooth loss [None]
